FAERS Safety Report 5879666-5 (Version None)
Quarter: 2008Q3

REPORT INFORMATION
  Report Type: 
  Country: None (occurrence: None)
  Receive Date: 20080911
  Receipt Date: 20080911
  Transmission Date: 20090109
  Serious: Yes (Hospitalization)
  Sender: FDA-Public Use
  Company Number: None

PATIENT
  Sex: Female
  Weight: 67 kg

DRUGS (8)
  1. FLUOROURACIL [Suspect]
     Dosage: 11586 MG
     Dates: end: 20080819
  2. BEVACIZUMAB (RHUMAB VEGF) [Suspect]
     Dosage: 975 MG
     Dates: end: 20080819
  3. LEUCOVORIN CALCIUM [Suspect]
     Dosage: 2088 MG
     Dates: end: 20080819
  4. ELOXATIN [Suspect]
     Dosage: 339 MG
     Dates: end: 20080819
  5. LORAZEPAM [Concomitant]
  6. NEXIUM [Concomitant]
  7. PANCREASE [Concomitant]
  8. REGLAN [Concomitant]

REACTIONS (1)
  - SMALL INTESTINAL OBSTRUCTION [None]
